FAERS Safety Report 9097024 (Version 1)
Quarter: 2013Q1

REPORT INFORMATION
  Report Type: Spontaneous
  Country: IN (occurrence: None)
  Receive Date: 20130125
  Receipt Date: 20130125
  Transmission Date: 20140127
  Serious: Yes (Hospitalization, Other)
  Sender: FDA-Public Use
  Company Number: 2013ST000008

PATIENT
  Age: 42 Year
  Sex: Male

DRUGS (8)
  1. FENOFIBRATE [Suspect]
     Indication: DYSLIPIDAEMIA
  2. WARFARIN [Suspect]
     Indication: DEEP VEIN THROMBOSIS
  3. ASPIRIN [Concomitant]
  4. ATORVASTATIN [Concomitant]
  5. DICLOFENAC [Concomitant]
  6. QUETIAPINE [Concomitant]
  7. PROPRANOLOL [Concomitant]
  8. CITALOPRAM [Concomitant]

REACTIONS (18)
  - Haemorrhage subcutaneous [None]
  - Spinal epidural haematoma [None]
  - Local swelling [None]
  - Local swelling [None]
  - Arthralgia [None]
  - Myalgia [None]
  - Hypovolaemic shock [None]
  - Back pain [None]
  - Radicular pain [None]
  - Melaena [None]
  - Urinary retention [None]
  - Paraparesis [None]
  - Muscle haemorrhage [None]
  - Ecchymosis [None]
  - Spinal cord haemorrhage [None]
  - Mucosal haemorrhage [None]
  - Drug interaction [None]
  - Areflexia [None]
